FAERS Safety Report 18746118 (Version 1)
Quarter: 2021Q1

REPORT INFORMATION
  Report Type: Spontaneous
  Country: US (occurrence: US)
  Receive Date: 20210114
  Receipt Date: 20210114
  Transmission Date: 20210419
  Serious: Yes (Other)
  Sender: FDA-Public Use
  Company Number: None

PATIENT
  Age: 23 Year
  Sex: Female
  Weight: 60.75 kg

DRUGS (8)
  1. GABAPENTIN. [Concomitant]
     Active Substance: GABAPENTIN
  2. SINGULAIR [Concomitant]
     Active Substance: MONTELUKAST SODIUM
  3. KLONOPIN [Suspect]
     Active Substance: CLONAZEPAM
     Indication: ANXIETY
     Dosage: ?          QUANTITY:1 TABLET(S);?
     Route: 048
  4. VITAMIN B2 [Concomitant]
     Active Substance: RIBOFLAVIN
  5. CYMBALTA [Concomitant]
     Active Substance: DULOXETINE HYDROCHLORIDE
  6. CLONIDINE. [Concomitant]
     Active Substance: CLONIDINE
  7. COENZYME Q10 [Concomitant]
     Active Substance: DIETARY SUPPLEMENT\UBIDECARENONE
  8. L?CARNITINE [Concomitant]
     Active Substance: LEVOCARNITINE

REACTIONS (11)
  - Withdrawal syndrome [None]
  - Fear [None]
  - Suicidal ideation [None]
  - Abdominal discomfort [None]
  - Dehydration [None]
  - Impaired work ability [None]
  - Panic attack [None]
  - Cognitive disorder [None]
  - Pain [None]
  - Condition aggravated [None]
  - Vomiting [None]

NARRATIVE: CASE EVENT DATE: 20190722
